FAERS Safety Report 5522207-2 (Version None)
Quarter: 2007Q4

REPORT INFORMATION
  Report Type: 
  Country: None (occurrence: None)
  Receive Date: 20071120
  Receipt Date: 20071115
  Transmission Date: 20080405
  Serious: Yes (Other)
  Sender: FDA-Public Use
  Company Number: B0495981A

PATIENT
  Age: 62 Year
  Sex: Male

DRUGS (4)
  1. AUGMENTIN '125' [Suspect]
     Indication: ANAL ABSCESS
     Dosage: 500MG THREE TIMES PER DAY
     Route: 048
     Dates: start: 20071023, end: 20071102
  2. AMERIDE [Concomitant]
     Route: 065
  3. DIOVAN [Concomitant]
     Route: 065
  4. IBUPROFEN TABLETS [Concomitant]
     Indication: ANAL ABSCESS
     Route: 065
     Dates: start: 20071023

REACTIONS (13)
  - ACHOLIA [None]
  - ASPARTATE AMINOTRANSFERASE INCREASED [None]
  - BLOOD BILIRUBIN INCREASED [None]
  - CHOLURIA [None]
  - HAEMORRHOIDS [None]
  - HEART RATE DECREASED [None]
  - HEPATIC STEATOSIS [None]
  - HEPATITIS [None]
  - HYPERTENSION [None]
  - JAUNDICE [None]
  - LIVER DISORDER [None]
  - PRURITUS GENERALISED [None]
  - SCLERAL DISCOLOURATION [None]
